FAERS Safety Report 25981093 (Version 1)
Quarter: 2025Q4

REPORT INFORMATION
  Report Type: Spontaneous
  Country: US (occurrence: None)
  Receive Date: 20251030
  Receipt Date: 20251030
  Transmission Date: 20260117
  Serious: Yes (Hospitalization)
  Sender: FDA-CTU
  Company Number: None

PATIENT
  Age: 48 Year
  Sex: Male

DRUGS (1)
  1. TAVNEOS [Suspect]
     Active Substance: AVACOPAN
     Dosage: FREQUENCY : TWICE A DAY;?
     Route: 048

REACTIONS (8)
  - Emotional disorder [None]
  - Increased appetite [None]
  - Arthralgia [None]
  - Gait disturbance [None]
  - Asthenia [None]
  - Weight decreased [None]
  - Constipation [None]
  - Peripheral swelling [None]

NARRATIVE: CASE EVENT DATE: 20251030
